FAERS Safety Report 8543756-9 (Version None)
Quarter: 2012Q3

REPORT INFORMATION
  Report Type: 
  Country: None (occurrence: None)
  Receive Date: 20120727
  Receipt Date: 20120718
  Transmission Date: 20120928
  Serious: Yes (Hospitalization)
  Sender: FDA-Public Use
  Company Number: FR-EISAI INC-E3810-05706-SPO-FR

PATIENT
  Sex: Male

DRUGS (5)
  1. CRESTOR [Concomitant]
     Route: 048
  2. PREVISCAN [Concomitant]
     Indication: CARDIOVASCULAR EVENT PROPHYLAXIS
     Route: 048
     Dates: start: 20120101
  3. ASPIRIN [Concomitant]
     Indication: CARDIOVASCULAR EVENT PROPHYLAXIS
     Route: 048
  4. NEBIVOLOL HCL [Concomitant]
     Route: 048
  5. RABEPRAZOLE SODIUM [Suspect]
     Route: 048
     Dates: start: 20120313, end: 20120323

REACTIONS (1)
  - HYPERTENSION [None]
